FAERS Safety Report 5502484-4 (Version None)
Quarter: 2007Q4

REPORT INFORMATION
  Report Type: 
  Country: None (occurrence: None)
  Receive Date: 20071030
  Receipt Date: 20071018
  Transmission Date: 20080405
  Serious: Yes (Other)
  Sender: FDA-Public Use
  Company Number: PFIZER INC-2007088686

PATIENT
  Sex: Female
  Weight: 75 kg

DRUGS (1)
  1. CHANTIX [Suspect]
     Indication: SMOKING CESSATION THERAPY
     Route: 048
     Dates: start: 20070914, end: 20071005

REACTIONS (4)
  - NIGHTMARE [None]
  - PERSONALITY CHANGE [None]
  - RESTLESSNESS [None]
  - ROAD TRAFFIC ACCIDENT [None]
